FAERS Safety Report 8486402-5 (Version None)
Quarter: 2012Q3

REPORT INFORMATION
  Report Type: 
  Country: None (occurrence: None)
  Receive Date: 20120703
  Receipt Date: 20120622
  Transmission Date: 20120928
  Serious: Yes (Hospitalization, Other)
  Sender: FDA-Public Use
  Company Number: US-BRISTOL-MYERS SQUIBB COMPANY-16706939

PATIENT
  Age: 37 Year
  Sex: Female

DRUGS (7)
  1. FUROSEMIDE [Concomitant]
  2. CELEXA [Concomitant]
  3. COUMADIN [Suspect]
     Route: 065
  4. TADALAFIL [Concomitant]
  5. EPOPROSTENOL SODIUM [Suspect]
     Indication: PULMONARY ARTERIAL HYPERTENSION
     Dosage: 1DF= 25NG/KG ALSO 30NG/KG/MIN
     Route: 041
     Dates: start: 20100909
  6. EXCEDRIN (MIGRAINE) [Suspect]
     Route: 065
  7. TRACLEER [Suspect]
     Indication: PULMONARY ARTERIAL HYPERTENSION
     Route: 048
     Dates: start: 20051206

REACTIONS (5)
  - GASTROINTESTINAL HAEMORRHAGE [None]
  - ANXIETY [None]
  - AGITATION [None]
  - SINUSITIS [None]
  - DYSPNOEA [None]
